FAERS Safety Report 9903434 (Version 1)
Quarter: 2014Q1

REPORT INFORMATION
  Report Type: Spontaneous
  Country: HU (occurrence: HU)
  Receive Date: 20140217
  Receipt Date: 20140217
  Transmission Date: 20141002
  Serious: Yes (Hospitalization)
  Sender: FDA-Public Use
  Company Number: US-ASTRAZENECA-2014SE10165

PATIENT
  Age: 198 Day
  Sex: Male

DRUGS (2)
  1. SYNAGIS [Suspect]
     Indication: ANTIVIRAL PROPHYLAXIS
     Dosage: SYNAGIS WAS GIVEN BASED ON BODY WEIGHT, MONTHLY
     Route: 030
     Dates: start: 20131104
  2. SYNAGIS [Suspect]
     Indication: ANTIVIRAL PROPHYLAXIS
     Dosage: SYNAGIS WAS GIVEN BASED ON BODY WEIGHT, MONTHLY
     Route: 030
     Dates: end: 20140107

REACTIONS (4)
  - Cough [Unknown]
  - Dyspnoea [Unknown]
  - Otitis media [Not Recovered/Not Resolved]
  - Pneumonia [Not Recovered/Not Resolved]
